FAERS Safety Report 9222372 (Version 1)
Quarter: 2013Q2

REPORT INFORMATION
  Report Type: Spontaneous
  Country: GB (occurrence: GB)
  Receive Date: 20130410
  Receipt Date: 20130410
  Transmission Date: 20140414
  Serious: Yes (Other)
  Sender: FDA-Public Use
  Company Number: GB-PFIZER INC-2013112590

PATIENT
  Age: 36 Year
  Sex: Male
  Weight: 69.85 kg

DRUGS (1)
  1. CHAMPIX [Suspect]
     Indication: SMOKING CESSATION THERAPY
     Dosage: LOWERED DOSE AND THEN STOPPED
     Route: 048
     Dates: start: 20130310, end: 20130324

REACTIONS (11)
  - Depression [Recovering/Resolving]
  - Dermatitis [Recovering/Resolving]
  - Dyspnoea [Recovering/Resolving]
  - Constipation [Recovering/Resolving]
  - Nausea [Recovering/Resolving]
  - Decreased interest [Recovering/Resolving]
  - Paranoia [Recovering/Resolving]
  - Lethargy [Recovering/Resolving]
  - Irritability [Recovering/Resolving]
  - Emotional poverty [Recovering/Resolving]
  - Sensory loss [Recovering/Resolving]
